FAERS Safety Report 5592990-9 (Version None)
Quarter: 2008Q1

REPORT INFORMATION
  Report Type: 
  Country: None (occurrence: None)
  Receive Date: 20080114
  Receipt Date: 20080104
  Transmission Date: 20080703
  Serious: Yes (Hospitalization, Other)
  Sender: FDA-Public Use
  Company Number: 2007SP024063

PATIENT
  Age: 49 Year
  Sex: Female

DRUGS (2)
  1. PEG-INTRON [Suspect]
     Indication: HEPATITIS C
     Dosage: SC
     Route: 058
     Dates: start: 20070426
  2. REBETOL [Suspect]
     Indication: HEPATITIS C
     Dosage: PO
     Route: 048
     Dates: start: 20070426

REACTIONS (16)
  - ANAEMIA [None]
  - BLOOD POTASSIUM DECREASED [None]
  - BRONCHITIS CHRONIC [None]
  - CHEST PAIN [None]
  - DEHYDRATION [None]
  - DIARRHOEA [None]
  - DYSPNOEA [None]
  - FEELING COLD [None]
  - LOSS OF CONSCIOUSNESS [None]
  - LUNG INFECTION [None]
  - MALAISE [None]
  - MOUTH ULCERATION [None]
  - PLEURISY [None]
  - PULMONARY FIBROSIS [None]
  - PURULENCE [None]
  - VOMITING [None]
